FAERS Safety Report 11278765 (Version 2)
Quarter: 2015Q3

REPORT INFORMATION
  Report Type: Report from Study
  Country: BR (occurrence: BR)
  Receive Date: 20150717
  Receipt Date: 20150729
  Transmission Date: 20151125
  Serious: Yes (Hospitalization, Other)
  Sender: FDA-Public Use
  Company Number: PHHY2015BR082350

PATIENT
  Sex: Female
  Weight: 50 kg

DRUGS (8)
  1. EXELON PATCH [Suspect]
     Active Substance: RIVASTIGMINE
     Dosage: PATCH 5 (CM2)
     Route: 062
     Dates: start: 20150703
  2. GLUCOREUMIN [Concomitant]
     Indication: ARTHRALGIA
     Dosage: 1 DF, QD (STARTED THE USE 10 YEARS AGO, USING STOMACH TUBE)
     Route: 065
  3. EXELON PATCH [Suspect]
     Active Substance: RIVASTIGMINE
     Indication: DEMENTIA ALZHEIMER^S TYPE
     Dosage: PATCH 5 (CM2)
     Route: 062
  4. OSCAL [Concomitant]
     Active Substance: CALCIUM CARBONATE
     Indication: OSTEOPOROSIS
     Dosage: 2 DF, QD, VIA STOMACH TUBE
     Route: 065
  5. EXELON PATCH [Suspect]
     Active Substance: RIVASTIGMINE
     Dosage: PATCH 15 (CM2)
     Route: 062
     Dates: end: 20150325
  6. MOTILIN [Concomitant]
     Indication: GASTROOESOPHAGEAL REFLUX DISEASE
     Dosage: 2 DF, QD, VIA STOMACH TUBE
     Route: 065
  7. EXELON PATCH [Suspect]
     Active Substance: RIVASTIGMINE
     Dosage: PATCH 10 (CM2)
     Route: 062
  8. NASAL SPRAY [Concomitant]
     Active Substance: UNSPECIFIED INGREDIENT
     Indication: MYALGIA
     Dosage: 1 DF, QD (STARTED THE USE 10 YEARS AGO)
     Route: 006

REACTIONS (2)
  - Pneumonia [Recovered/Resolved]
  - Hypothyroidism [Recovering/Resolving]
